FAERS Safety Report 10564330 (Version 3)
Quarter: 2015Q3

REPORT INFORMATION
  Report Type: Spontaneous
  Country: IT (occurrence: IT)
  Receive Date: 20141104
  Receipt Date: 20150806
  Transmission Date: 20151125
  Serious: Yes (Other)
  Sender: FDA-Public Use
  Company Number: IT-ELI_LILLY_AND_COMPANY-IT201410009057

PATIENT
  Age: 35 Year
  Sex: Male

DRUGS (4)
  1. DEPAKIN [Concomitant]
     Active Substance: VALPROATE SODIUM
     Dosage: 1500 MG, UNKNOWN
     Route: 065
  2. ZYPADHERA [Interacting]
     Active Substance: OLANZAPINE PAMOATE
     Indication: BIPOLAR DISORDER
  3. HALDOL [Interacting]
     Active Substance: HALOPERIDOL
     Indication: SCHIZOPHRENIA
     Dosage: 5 MG, QD
     Dates: start: 20140626, end: 20150128
  4. ZYPADHERA [Suspect]
     Active Substance: OLANZAPINE PAMOATE
     Indication: SCHIZOPHRENIA
     Dosage: 300 MG, MONTHLY (1/M)
     Route: 030
     Dates: start: 20140703, end: 20150313

REACTIONS (3)
  - Drug interaction [Unknown]
  - Neutrophil count decreased [Recovered/Resolved]
  - Blood prolactin increased [Recovered/Resolved]

NARRATIVE: CASE EVENT DATE: 201409
